FAERS Safety Report 4469491-4 (Version None)
Quarter: 2004Q4

REPORT INFORMATION
  Report Type: 
  Country: None (occurrence: None)
  Receive Date: 20041005
  Receipt Date: 20040922
  Transmission Date: 20050328
  Serious: Yes (Other)
  Sender: FDA-Public Use
  Company Number: 2004069182

PATIENT
  Sex: Male

DRUGS (2)
  1. NEURONTIN [Suspect]
     Indication: REFLEX SYMPATHETIC DYSTROPHY
     Dosage: 600 MG (200 MG, 3 IN 1 D), ORAL
     Route: 048
     Dates: start: 20031101, end: 20040101
  2. METHADONE HCL [Concomitant]

REACTIONS (7)
  - ASTHENIA [None]
  - ECONOMIC PROBLEM [None]
  - GAIT DISTURBANCE [None]
  - MUSCULOSKELETAL STIFFNESS [None]
  - VOMITING [None]
  - WEIGHT DECREASED [None]
  - WEIGHT FLUCTUATION [None]
